FAERS Safety Report 6699906-2 (Version None)
Quarter: 2010Q2

REPORT INFORMATION
  Report Type: 
  Country: None (occurrence: None)
  Receive Date: 20100428
  Receipt Date: 20100422
  Transmission Date: 20101027
  Serious: Yes (Life-Threatening)
  Sender: FDA-Public Use
  Company Number: NL-PERRIGO-10NL009033

PATIENT
  Age: 53 Year
  Sex: Male

DRUGS (2)
  1. NAPROXEN RX 500MG 631 [Suspect]
     Indication: DRUG USE FOR UNKNOWN INDICATION
     Dosage: 500 MG, BID
     Route: 065
  2. SERTRALINE HCL [Suspect]
     Indication: DEPRESSION
     Dosage: 100 MG, QD
     Route: 048

REACTIONS (10)
  - CARCINOMA IN SITU [None]
  - DRUG INTERACTION [None]
  - DYSPNOEA [None]
  - EPISTAXIS [None]
  - LIP AND/OR ORAL CAVITY CANCER [None]
  - OEDEMA MOUTH [None]
  - POST PROCEDURAL HAEMORRHAGE [None]
  - SQUAMOUS CELL CARCINOMA [None]
  - TOOTH EXTRACTION [None]
  - UPPER AIRWAY OBSTRUCTION [None]
